FAERS Safety Report 6120043-X (Version None)
Quarter: 2009Q1

REPORT INFORMATION
  Report Type: 
  Country: None (occurrence: None)
  Receive Date: 20090316
  Receipt Date: 20090304
  Transmission Date: 20090719
  Serious: Yes (Other)
  Sender: FDA-Public Use
  Company Number: US-PFIZER INC-2009181814

PATIENT
  Age: 28 Year
  Sex: Female

DRUGS (2)
  1. CHANTIX [Suspect]
     Indication: SMOKING CESSATION THERAPY
     Dosage: UNK
     Dates: start: 20090101, end: 20090101
  2. DRUG, UNSPECIFIED [Interacting]
     Indication: SCHIZOPHRENIA
     Dosage: UNK

REACTIONS (2)
  - DELUSION [None]
  - DRUG INTERACTION [None]
